FAERS Safety Report 9492183 (Version 1)
Quarter: 2013Q3

REPORT INFORMATION
  Report Type: Spontaneous
  Country: US (occurrence: US)
  Receive Date: 20130830
  Receipt Date: 20130830
  Transmission Date: 20140515
  Serious: Yes (Hospitalization)
  Sender: FDA-Public Use
  Company Number: US-WATSON-2013-14933

PATIENT
  Age: 59 Year
  Sex: Male
  Weight: 91 kg

DRUGS (7)
  1. FENTANYL-50 (WATSON LABORATORIES) [Suspect]
     Indication: SCOLIOSIS
     Dosage: 1 PATCH, Q72H
     Route: 062
     Dates: start: 20130808, end: 20130812
  2. FENTANYL-50 (WATSON LABORATORIES) [Suspect]
     Dosage: 1 PATCH, Q72H
     Route: 062
     Dates: start: 201307, end: 20130807
  3. AMITRIPTYLINE [Concomitant]
     Indication: SLEEP DISORDER
     Dosage: UNK
     Route: 048
  4. METFORMIN [Concomitant]
     Indication: DIABETES MELLITUS
     Dosage: UNK
     Route: 048
  5. LISINOPRIL [Concomitant]
     Indication: HYPERTENSION
     Dosage: UNK
     Route: 048
  6. GABAPENTIN [Concomitant]
     Indication: PAIN
     Dosage: UNK
     Route: 048
  7. HYDROCODONE [Concomitant]
     Indication: PAIN
     Dosage: UNK
     Route: 048

REACTIONS (2)
  - Renal failure acute [Recovered/Resolved]
  - Fall [Recovered/Resolved]
